FAERS Safety Report 5317282-4 (Version None)
Quarter: 2007Q2

REPORT INFORMATION
  Report Type: 
  Country: None (occurrence: None)
  Receive Date: 20070504
  Receipt Date: 20070424
  Transmission Date: 20071010
  Serious: Yes (Other)
  Sender: FDA-Public Use
  Company Number: ZA-PFIZER INC-2007033059

PATIENT
  Age: 94 Year
  Sex: Female

DRUGS (1)
  1. FRAGMIN [Suspect]
     Dosage: DAILY DOSE:2500I.U.-FREQ:DAILY

REACTIONS (1)
  - HEMIPARESIS [None]
